FAERS Safety Report 16767071 (Version 1)
Quarter: 2019Q3

REPORT INFORMATION
  Report Type: Spontaneous
  Country: JP (occurrence: JP)
  Receive Date: 20190903
  Receipt Date: 20190903
  Transmission Date: 20191005
  Serious: Yes (Hospitalization)
  Sender: FDA-Public Use
  Company Number: JP-CELGENEUS-JPN-20190406775

PATIENT
  Age: 69 Year
  Sex: Male
  Weight: 65 kg

DRUGS (14)
  1. BAKTAR [Concomitant]
     Active Substance: SULFAMETHOXAZOLE\TRIMETHOPRIM
     Indication: ANTIFUNGAL PROPHYLAXIS
     Dosage: UNKNOWN
     Route: 048
     Dates: start: 2017
  2. XYZAL [Concomitant]
     Active Substance: LEVOCETIRIZINE DIHYDROCHLORIDE
     Indication: RHINITIS ALLERGIC
     Dosage: 5 MILLIGRAM
     Route: 048
     Dates: start: 2017
  3. ZOVIRAX [Concomitant]
     Active Substance: ACYCLOVIR
     Indication: HERPES SIMPLEX
     Dosage: 200 MILLIGRAM
     Route: 048
     Dates: start: 2017
  4. PROMAC D [Concomitant]
     Active Substance: POLAPREZINC
     Indication: GASTRIC ULCER
     Dosage: 150 MILLIGRAM
     Route: 048
     Dates: start: 2017
  5. NEXIUM [Concomitant]
     Active Substance: ESOMEPRAZOLE MAGNESIUM
     Indication: GASTRIC ULCER
     Dosage: 20 MILLIGRAM
     Route: 048
     Dates: start: 2017
  6. EXCEGRAN [Concomitant]
     Active Substance: ZONISAMIDE
     Indication: EPILEPSY
     Dosage: 200 MILLIGRAM
     Route: 048
     Dates: start: 2017
  7. TRYPTANOL [Concomitant]
     Active Substance: AMITRIPTYLINE
     Indication: NEURALGIA
     Dosage: 40 MILLIGRAM
     Route: 048
     Dates: start: 2017
  8. LIRICA [Concomitant]
     Active Substance: PREGABALIN
     Indication: NEURALGIA
     Dosage: 300 MILLIGRAM
     Route: 048
     Dates: start: 2017
  9. ISTODAX [Suspect]
     Active Substance: ROMIDEPSIN
     Indication: ANAPLASTIC LARGE-CELL LYMPHOMA
     Dosage: 25 MILLIGRAM
     Route: 041
     Dates: start: 20190322, end: 2019
  10. MAGNESIUM OXIDE. [Concomitant]
     Active Substance: MAGNESIUM OXIDE
     Indication: CONSTIPATION
     Dosage: 1980 MILLIGRAM
     Route: 048
     Dates: start: 2017
  11. ISTODAX [Suspect]
     Active Substance: ROMIDEPSIN
     Dosage: 25 MILLIGRAM
     Route: 041
     Dates: start: 20190419, end: 20190424
  12. CYMBALTA [Concomitant]
     Active Substance: DULOXETINE HYDROCHLORIDE
     Indication: BACK PAIN
     Dosage: 60 MILLIGRAM
     Route: 048
     Dates: start: 2017
  13. LOXOPROFEN SODIUM [Concomitant]
     Active Substance: LOXOPROFEN SODIUM
     Indication: BACK PAIN
     Dosage: 120 MILLIGRAM
     Route: 048
     Dates: start: 2017
  14. VITAMINS NOS [Concomitant]
     Active Substance: VITAMINS
     Indication: LUMBAR SPINAL STENOSIS
     Dosage: 15 MICROGRAM
     Route: 048
     Dates: start: 2017

REACTIONS (2)
  - Interstitial lung disease [Recovering/Resolving]
  - Thrombocytopenia [Recovered/Resolved]

NARRATIVE: CASE EVENT DATE: 2019
